FAERS Safety Report 25861574 (Version 3)
Quarter: 2025Q4

REPORT INFORMATION
  Report Type: Report from Study
  Country: VN (occurrence: VN)
  Receive Date: 20250930
  Receipt Date: 20251014
  Transmission Date: 20260117
  Serious: Yes (Other)
  Sender: JOHNSON AND JOHNSON
  Company Number: VN-JNJFOC-20241027635

PATIENT
  Age: 55 Year
  Sex: Male

DRUGS (13)
  1. DARZALEX [Suspect]
     Active Substance: DARATUMUMAB
     Indication: Plasma cell myeloma refractory
     Dosage: 3RD DOSE
     Route: 042
     Dates: start: 20241226
  2. DARZALEX [Suspect]
     Active Substance: DARATUMUMAB
     Dosage: 1ST DOSE
     Route: 042
     Dates: start: 20241002
  3. DARZALEX [Suspect]
     Active Substance: DARATUMUMAB
     Dosage: 2ND DOSE
     Route: 042
     Dates: start: 20241127
  4. DARZALEX [Suspect]
     Active Substance: DARATUMUMAB
     Dosage: 4TH DOSE
     Route: 042
     Dates: start: 20250123
  5. DARZALEX [Suspect]
     Active Substance: DARATUMUMAB
     Dosage: 5TH DOSE
     Route: 042
     Dates: start: 20250220
  6. DARZALEX [Suspect]
     Active Substance: DARATUMUMAB
     Dosage: 6TH DOSE
     Route: 042
     Dates: start: 20250321
  7. DARZALEX [Suspect]
     Active Substance: DARATUMUMAB
     Dosage: 7TH DOSE
     Route: 042
     Dates: start: 20250422
  8. DARZALEX [Suspect]
     Active Substance: DARATUMUMAB
     Dosage: 8TH DOSE
     Route: 042
     Dates: start: 20250521
  9. DARZALEX [Suspect]
     Active Substance: DARATUMUMAB
     Dosage: 9TH DOSE
     Route: 042
     Dates: start: 20250625
  10. DARZALEX [Suspect]
     Active Substance: DARATUMUMAB
     Dosage: 10TH DOSE
     Route: 042
     Dates: start: 20250730
  11. DARZALEX [Suspect]
     Active Substance: DARATUMUMAB
     Dosage: 11TH DOSE
     Route: 042
     Dates: start: 20250911
  12. LENALIDOMIDE [Suspect]
     Active Substance: LENALIDOMIDE
     Indication: Plasma cell myeloma refractory
     Route: 065
  13. DEXAMETHASONE [Suspect]
     Active Substance: DEXAMETHASONE
     Indication: Plasma cell myeloma refractory
     Route: 065

REACTIONS (3)
  - Leukopenia [Unknown]
  - Inappropriate schedule of product administration [Unknown]
  - Product dose omission issue [Unknown]

NARRATIVE: CASE EVENT DATE: 20241008
